FAERS Safety Report 6342780-4 (Version None)
Quarter: 2009Q3

REPORT INFORMATION
  Report Type: 
  Country: None (occurrence: None)
  Receive Date: 20090903
  Receipt Date: 20090819
  Transmission Date: 20100115
  Serious: Yes (Hospitalization)
  Sender: FDA-Public Use
  Company Number: 2009080054

PATIENT
  Age: 75 Year
  Sex: Female

DRUGS (5)
  1. TORSEMIDE [Suspect]
     Dosage: 4 MG (4 MG, 1 IN 1 D)
     Route: 048
     Dates: end: 20090609
  2. TORSEMIDE [Suspect]
     Dosage: 4 MG (4 MG, 1 IN 1 D)
     Route: 048
     Dates: start: 20090702
  3. LIPITOR [Suspect]
     Indication: HYPERLIPIDAEMIA
     Dosage: 5 MG (5 MG, 1 IN 1 D)
     Dates: end: 20090609
  4. LIPITOR [Suspect]
     Indication: HYPERLIPIDAEMIA
     Dosage: 5 MG (5 MG, 1 IN 1 D)
     Dates: start: 20090702
  5. ALOSSENN (ACHILLEA, MADDER, SENNA, TARAXACUM OFFICINALE) [Concomitant]

REACTIONS (2)
  - HAEMORRHAGIC DIATHESIS [None]
  - IDIOPATHIC THROMBOCYTOPENIC PURPURA [None]
